FAERS Safety Report 25350179 (Version 1)
Quarter: 2025Q2

REPORT INFORMATION
  Report Type: Spontaneous
  Country: US (occurrence: US)
  Receive Date: 20250523
  Receipt Date: 20250523
  Transmission Date: 20250717
  Serious: No
  Sender: GLAXOSMITHKLINE
  Company Number: US-GSK-US2025AMR061968

PATIENT
  Sex: Female

DRUGS (10)
  1. NUCALA [Suspect]
     Active Substance: MEPOLIZUMAB
     Indication: Asthma
  2. NUCALA [Suspect]
     Active Substance: MEPOLIZUMAB
     Indication: Renal disorder
  3. NUCALA [Suspect]
     Active Substance: MEPOLIZUMAB
     Indication: Ureteral disorder
  4. NUCALA [Suspect]
     Active Substance: MEPOLIZUMAB
     Indication: Asthma
  5. NUCALA [Suspect]
     Active Substance: MEPOLIZUMAB
     Indication: Neoplasm malignant
  6. NUCALA [Suspect]
     Active Substance: MEPOLIZUMAB
     Indication: Cardiac disorder
  7. NUCALA [Suspect]
     Active Substance: MEPOLIZUMAB
     Indication: Thyroid disorder
  8. NUCALA [Suspect]
     Active Substance: MEPOLIZUMAB
     Indication: Osteoporosis
  9. NUCALA [Suspect]
     Active Substance: MEPOLIZUMAB
     Indication: Cerebral infarction
  10. NUCALA [Suspect]
     Active Substance: MEPOLIZUMAB
     Indication: Chronic sinusitis

REACTIONS (1)
  - Injection site pain [Unknown]
